FAERS Safety Report 13372332 (Version 6)
Quarter: 2019Q1

REPORT INFORMATION
  Report Type: Report from Study
  Country: CA (occurrence: CA)
  Receive Date: 20170327
  Receipt Date: 20190311
  Transmission Date: 20190417
  Serious: Yes (Other)
  Sender: FDA-Public Use
  Company Number: CA-ROCHE-1460620

PATIENT
  Age: 49 Year
  Sex: Female

DRUGS (8)
  1. TYLENOL [Concomitant]
     Active Substance: ACETAMINOPHEN
  2. ACETAMINOPHEN. [Concomitant]
     Active Substance: ACETAMINOPHEN
     Indication: PREMEDICATION
     Route: 048
     Dates: start: 20120507, end: 20120523
  3. ARAVA [Concomitant]
     Active Substance: LEFLUNOMIDE
  4. PREDNISONE. [Concomitant]
     Active Substance: PREDNISONE
  5. RITUXAN [Suspect]
     Active Substance: RITUXIMAB
     Indication: RHEUMATOID ARTHRITIS
     Dosage: PREVIOUS RITUXIMAB INFUSION: 02/OCT/2014?LAST RITUXIMAB DOSE: 21-APR-2017
     Route: 042
     Dates: start: 20120507
  6. DIPHENHYDRAMINE HCL [Concomitant]
     Active Substance: DIPHENHYDRAMINE HYDROCHLORIDE
     Indication: PREMEDICATION
     Route: 048
     Dates: start: 20120507, end: 20120507
  7. METHYLPREDNISOLONE. [Concomitant]
     Active Substance: METHYLPREDNISOLONE
     Indication: PREMEDICATION
     Route: 042
     Dates: start: 20120507
  8. LEFLUNOMIDE. [Concomitant]
     Active Substance: LEFLUNOMIDE
     Route: 065
     Dates: start: 2010

REACTIONS (19)
  - Rheumatoid arthritis [Not Recovered/Not Resolved]
  - Drug ineffective [Unknown]
  - Palpitations [Recovered/Resolved]
  - Pain in extremity [Unknown]
  - Hepatic enzyme increased [Unknown]
  - Blood pressure systolic increased [Unknown]
  - Eye pruritus [Recovered/Resolved]
  - Feeling hot [Unknown]
  - Arthralgia [Not Recovered/Not Resolved]
  - Stress [Unknown]
  - Blood pressure diastolic abnormal [Unknown]
  - Oxygen saturation decreased [Unknown]
  - Blood pressure fluctuation [Unknown]
  - Throat irritation [Recovered/Resolved]
  - Heart rate increased [Unknown]
  - Oxygen saturation decreased [Unknown]
  - Allergy to arthropod sting [Unknown]
  - Infusion related reaction [Unknown]
  - Muscle twitching [Unknown]

NARRATIVE: CASE EVENT DATE: 20140918
